FAERS Safety Report 19133185 (Version 1)
Quarter: 2021Q2

REPORT INFORMATION
  Report Type: Spontaneous
  Country: US (occurrence: US)
  Receive Date: 20210413
  Receipt Date: 20210413
  Transmission Date: 20210717
  Serious: No
  Sender: FDA-Public Use
  Company Number: None

PATIENT
  Age: 52 Year
  Sex: Male

DRUGS (14)
  1. OPSUMIT [Suspect]
     Active Substance: MACITENTAN
     Indication: PULMONARY HYPERTENSION
     Route: 048
     Dates: start: 20200106
  2. TYLENOL [Concomitant]
     Active Substance: ACETAMINOPHEN
  3. ATORVASTATIN [Concomitant]
     Active Substance: ATORVASTATIN
  4. MVI [Concomitant]
     Active Substance: VITAMINS
  5. THIAMINE. [Concomitant]
     Active Substance: THIAMINE
  6. OMEPRAZOLE. [Concomitant]
     Active Substance: OMEPRAZOLE
  7. SILDENAFIL. [Concomitant]
     Active Substance: SILDENAFIL
  8. WARFARIN [Concomitant]
     Active Substance: WARFARIN
  9. FUROSEMIDE. [Concomitant]
     Active Substance: FUROSEMIDE
  10. METOLAZONE. [Concomitant]
     Active Substance: METOLAZONE
  11. FERROUS SULFATE. [Concomitant]
     Active Substance: FERROUS SULFATE
  12. CYANOCOBALAMIN. [Concomitant]
     Active Substance: CYANOCOBALAMIN
  13. OXYGEN INTRANASAL [Concomitant]
  14. BETAMETHASONE DIPROPIONATE TOP OINT [Concomitant]

REACTIONS (4)
  - Cardiac failure acute [None]
  - Peripheral swelling [None]
  - Weight increased [None]
  - Dyspnoea exertional [None]

NARRATIVE: CASE EVENT DATE: 20210330
